FAERS Safety Report 4469617-2 (Version None)
Quarter: 2004Q4

REPORT INFORMATION
  Report Type: 
  Country: None (occurrence: None)
  Receive Date: 20041008
  Receipt Date: 20040930
  Transmission Date: 20050328
  Serious: Yes (Hospitalization)
  Sender: FDA-Public Use
  Company Number: FR-ABBOTT-04P-056-0275973-00

PATIENT
  Age: 68 Year
  Sex: Female
  Weight: 60 kg

DRUGS (5)
  1. KALETRA [Suspect]
     Indication: HIV INFECTION
     Route: 048
     Dates: start: 20040824, end: 20040825
  2. KALETRA [Suspect]
     Route: 048
     Dates: start: 20040101, end: 20040101
  3. FOSEMPRENAVIR [Concomitant]
     Indication: HIV INFECTION
     Route: 048
     Dates: start: 20040824, end: 20040825
  4. DIPHTHERIA,PERTUSSIS,TETANUS,POLIOMYELIT [Concomitant]
     Indication: IMMUNISATION
     Route: 030
     Dates: start: 20040710, end: 20040710
  5. DIPHTHERIA,PERTUSSIS,TETANUS,POLIOMYELIT [Concomitant]
     Route: 030
     Dates: start: 20040824, end: 20040824

REACTIONS (3)
  - DERMATITIS BULLOUS [None]
  - PURPURA [None]
  - THROMBOCYTOPENIA [None]
